FAERS Safety Report 16541797 (Version 1)
Quarter: 2019Q3

REPORT INFORMATION
  Report Type: Spontaneous
  Country: CN (occurrence: CN)
  Receive Date: 20190708
  Receipt Date: 20190708
  Transmission Date: 20191004
  Serious: Yes (Other)
  Sender: FDA-Public Use
  Company Number: PHHY2019CN156256

PATIENT
  Age: 83 Year
  Sex: Female

DRUGS (2)
  1. CARBAMAZEPINE. [Suspect]
     Active Substance: CARBAMAZEPINE
     Indication: BACK PAIN
     Dosage: UNK
     Route: 048
     Dates: end: 20060727
  2. CHLORZOXAZONE. [Suspect]
     Active Substance: CHLORZOXAZONE
     Indication: BACK PAIN
     Dosage: UNK
     Route: 048
     Dates: end: 20060729

REACTIONS (15)
  - Macule [Unknown]
  - Oedema peripheral [Unknown]
  - Sleep disorder [Unknown]
  - Pruritus [Unknown]
  - Skin exfoliation [Unknown]
  - Rash [Unknown]
  - Product use in unapproved indication [Unknown]
  - Pyrexia [Unknown]
  - Rales [Unknown]
  - Dermatitis bullous [Unknown]
  - Blister [Unknown]
  - Cough [Unknown]
  - Urinary bladder rupture [Unknown]
  - Scratch [Unknown]
  - Nasal obstruction [Unknown]

NARRATIVE: CASE EVENT DATE: 20060728
